FAERS Safety Report 10269639 (Version 2)
Quarter: 2014Q3

REPORT INFORMATION
  Report Type: Spontaneous
  Country: US (occurrence: None)
  Receive Date: 20140612
  Receipt Date: 20140718
  Transmission Date: 20150326
  Serious: Yes (Hospitalization, Other)
  Sender: FDA-Public Use
  Company Number: 003-184

PATIENT
  Age: 48 Year
  Sex: Male

DRUGS (1)
  1. CROFAB [Suspect]
     Active Substance: CROTALIDAE POLYVALENT IMMUNE FAB (OVINE)
     Indication: SNAKE BITE
     Dosage: 20 VIALS
     Dates: start: 201405, end: 20140526

REACTIONS (2)
  - Thrombocytopenia [None]
  - Swelling [None]

NARRATIVE: CASE EVENT DATE: 20140529
